FAERS Safety Report 22243243 (Version 1)
Quarter: 2023Q2

REPORT INFORMATION
  Report Type: Spontaneous
  Country: US (occurrence: US)
  Receive Date: 20230424
  Receipt Date: 20230424
  Transmission Date: 20230721
  Serious: No
  Sender: FDA-Public Use
  Company Number: US-PFIZER INC-202300163544

PATIENT
  Age: 45 Year

DRUGS (12)
  1. VERAPAMIL HCL [Suspect]
     Active Substance: VERAPAMIL HYDROCHLORIDE
     Indication: Migraine prophylaxis
     Dosage: UNK
  2. VERAPAMIL HCL [Suspect]
     Active Substance: VERAPAMIL HYDROCHLORIDE
     Indication: Migraine
  3. VERAPAMIL HCL [Suspect]
     Active Substance: VERAPAMIL HYDROCHLORIDE
     Indication: Headache
  4. MELATONIN [Suspect]
     Active Substance: MELATONIN
     Indication: Migraine prophylaxis
     Dosage: UNK
  5. MELATONIN [Suspect]
     Active Substance: MELATONIN
     Indication: Migraine
  6. MELATONIN [Suspect]
     Active Substance: MELATONIN
     Indication: Headache
  7. TOPIRAMATE [Suspect]
     Active Substance: TOPIRAMATE
     Indication: Migraine prophylaxis
     Dosage: UNK
  8. TOPIRAMATE [Suspect]
     Active Substance: TOPIRAMATE
     Indication: Migraine
  9. TOPIRAMATE [Suspect]
     Active Substance: TOPIRAMATE
     Indication: Headache
  10. LITHIUM [Suspect]
     Active Substance: LITHIUM
     Indication: Migraine prophylaxis
     Dosage: UNK
  11. LITHIUM [Suspect]
     Active Substance: LITHIUM
     Indication: Migraine
  12. LITHIUM [Suspect]
     Active Substance: LITHIUM
     Indication: Headache

REACTIONS (2)
  - Off label use [Unknown]
  - Drug ineffective for unapproved indication [Unknown]
